FAERS Safety Report 20982495 (Version 1)
Quarter: 2022Q2

REPORT INFORMATION
  Report Type: Spontaneous
  Country: US (occurrence: US)
  Receive Date: 20220620
  Receipt Date: 20220620
  Transmission Date: 20220721
  Serious: No
  Sender: FDA-Public Use
  Company Number: US-NOVOPROD-917750

PATIENT
  Age: 62 Year
  Sex: Female

DRUGS (1)
  1. WEGOVY [Suspect]
     Active Substance: SEMAGLUTIDE
     Indication: Product used for unknown indication
     Dosage: 0.25 MG, QW
     Route: 058
     Dates: start: 20220329

REACTIONS (5)
  - Injection site extravasation [Not Recovered/Not Resolved]
  - Injection site reaction [Recovered/Resolved]
  - Device malfunction [Unknown]
  - Product communication issue [Unknown]
  - Device failure [Unknown]

NARRATIVE: CASE EVENT DATE: 20220301
